FAERS Safety Report 17531623 (Version 3)
Quarter: 2021Q4

REPORT INFORMATION
  Report Type: Spontaneous
  Country: US (occurrence: US)
  Receive Date: 20200311
  Receipt Date: 20211026
  Transmission Date: 20220303
  Serious: Yes (Hospitalization)
  Sender: FDA-Public Use
  Company Number: US-SA-2020SA062165

PATIENT
  Age: 56 Year
  Sex: Female

DRUGS (1)
  1. DUPIXENT [Suspect]
     Active Substance: DUPILUMAB
     Indication: Asthma
     Dosage: 300 MG, QOW
     Route: 058
     Dates: start: 20190131

REACTIONS (4)
  - Surgery [Recovering/Resolving]
  - Sinusitis [Unknown]
  - Upper-airway cough syndrome [Unknown]
  - Pain [Unknown]

NARRATIVE: CASE EVENT DATE: 20200101
